FAERS Safety Report 21195077 (Version 1)
Quarter: 2022Q3

REPORT INFORMATION
  Report Type: Spontaneous
  Country: BR (occurrence: None)
  Receive Date: 20220810
  Receipt Date: 20220810
  Transmission Date: 20221027
  Serious: Yes (Death, Other)
  Sender: FDA-Public Use
  Company Number: 2022A280727

PATIENT
  Sex: Female

DRUGS (2)
  1. ACALABRUTINIB [Suspect]
     Active Substance: ACALABRUTINIB
     Indication: Mantle cell lymphoma
     Route: 048
  2. EVUSHELD [Suspect]
     Active Substance: CILGAVIMAB\TIXAGEVIMAB
     Indication: Fungal infection
     Route: 030

REACTIONS (6)
  - Sepsis [Fatal]
  - Gastrointestinal lymphoma [Unknown]
  - Fungal infection [Unknown]
  - COVID-19 [Unknown]
  - Abdominal pain upper [Unknown]
  - Off label use [Unknown]
